FAERS Safety Report 15673760 (Version 3)
Quarter: 2019Q3

REPORT INFORMATION
  Report Type: Spontaneous
  Country: US (occurrence: US)
  Receive Date: 20181129
  Receipt Date: 20190708
  Transmission Date: 20191004
  Serious: Yes (Other)
  Sender: FDA-Public Use
  Company Number: US-PFIZER INC-2018451421

PATIENT
  Age: 88 Year
  Sex: Male

DRUGS (1)
  1. PROTONIX [Suspect]
     Active Substance: PANTOPRAZOLE SODIUM
     Indication: GASTROOESOPHAGEAL REFLUX DISEASE
     Dosage: 40 MG, DAILY (ONE TABLET BY MOUTH DAILY)
     Route: 048
     Dates: start: 200709

REACTIONS (3)
  - Gait disturbance [Unknown]
  - Multiple sclerosis [Unknown]
  - Visual impairment [Unknown]
